FAERS Safety Report 19313093 (Version 2)
Quarter: 2021Q2

REPORT INFORMATION
  Report Type: Spontaneous
  Country: JP (occurrence: JP)
  Receive Date: 20210527
  Receipt Date: 20210610
  Transmission Date: 20210717
  Serious: Yes (Other)
  Sender: FDA-Public Use
  Company Number: NVSJ2021JP006869

PATIENT

DRUGS (1)
  1. ILARIS [Suspect]
     Active Substance: CANAKINUMAB
     Indication: STILL^S DISEASE
     Dosage: UNK
     Route: 058
     Dates: start: 202009

REACTIONS (2)
  - Cryopyrin associated periodic syndrome [Unknown]
  - Urticaria cholinergic [Not Recovered/Not Resolved]

NARRATIVE: CASE EVENT DATE: 202011
